FAERS Safety Report 9734662 (Version 1)
Quarter: 2013Q4

REPORT INFORMATION
  Report Type: Spontaneous
  Country: US (occurrence: US)
  Receive Date: 20131206
  Receipt Date: 20131206
  Transmission Date: 20140711
  Serious: Yes (Hospitalization)
  Sender: FDA-Public Use
  Company Number: US-AMGEN-USASP2013084911

PATIENT
  Age: 57 Year
  Sex: Male
  Weight: 70.3 kg

DRUGS (1)
  1. ENBREL [Suspect]
     Indication: PSORIASIS
     Dosage: UNK UNK, 2 TIMES/WK
     Route: 058

REACTIONS (1)
  - Hepatic cirrhosis [Unknown]
